FAERS Safety Report 23245845 (Version 2)
Quarter: 2023Q4

REPORT INFORMATION
  Report Type: Report from Study
  Country: US (occurrence: US)
  Receive Date: 20231130
  Receipt Date: 20231221
  Transmission Date: 20240110
  Serious: No
  Sender: FDA-Public Use
  Company Number: US-002147023-NVSC2023US255066

PATIENT
  Age: 48 Year
  Sex: Female

DRUGS (1)
  1. KESIMPTA [Suspect]
     Active Substance: OFATUMUMAB
     Indication: Multiple sclerosis
     Dosage: 20 MG, OTHER (WEEKLY FOR 3 WEEKS, SKIP A WEEK, THEN AT NEXT WEEK START MONTHLY)
     Route: 058
     Dates: start: 20231119

REACTIONS (4)
  - Chest discomfort [Unknown]
  - Cough [Unknown]
  - Feeling abnormal [Unknown]
  - Illness [Unknown]

NARRATIVE: CASE EVENT DATE: 20231126
